FAERS Safety Report 4455562-5 (Version None)
Quarter: 2004Q3

REPORT INFORMATION
  Report Type: 
  Country: None (occurrence: None)
  Receive Date: 20040917
  Receipt Date: 20040901
  Transmission Date: 20050211
  Serious: Yes (Hospitalization)
  Sender: FDA-Public Use
  Company Number: GBS040915520

PATIENT
  Age: 49 Year
  Sex: Male

DRUGS (10)
  1. VANCOMYCIN [Suspect]
     Indication: WOUND INFECTION
     Dosage: 1 G/2  DAY
     Dates: start: 20040727, end: 20040816
  2. CO-CODAMOL [Concomitant]
  3. LANSOPRAZOLE [Concomitant]
  4. IRON SULFATETHIAMIN COMPOUND TAB [Concomitant]
  5. LACTULOSE [Concomitant]
  6. SENNA [Concomitant]
  7. ZOPLICONE (ZOPICLONE) [Concomitant]
  8. ATENOLOL [Concomitant]
  9. ATORVASTATIN CALCIUM [Concomitant]
  10. ASPIRIN [Concomitant]

REACTIONS (2)
  - HAEMOGLOBIN DECREASED [None]
  - NEUTROPENIA [None]
